FAERS Safety Report 7085901-0 (Version None)
Quarter: 2010Q4

REPORT INFORMATION
  Report Type: 
  Country: None (occurrence: None)
  Receive Date: 20101007
  Receipt Date: 20100819
  Transmission Date: 20110411
  Serious: No
  Sender: FDA-Public Use
  Company Number: 2010IP000104

PATIENT

DRUGS (1)
  1. BEPREVE [Suspect]

REACTIONS (2)
  - EYE INFLAMMATION [None]
  - EYE SWELLING [None]
